FAERS Safety Report 5763944-4 (Version None)
Quarter: 2008Q2

REPORT INFORMATION
  Report Type: 
  Country: None (occurrence: None)
  Receive Date: 20080602
  Receipt Date: 20070423
  Transmission Date: 20081010
  Serious: No
  Sender: FDA-Public Use
  Company Number: T200700449

PATIENT
  Sex: Female

DRUGS (1)
  1. METHADOSE [Suspect]
     Dosage: 1/2 TABLET DAILY, ORAL
     Route: 048
     Dates: end: 20070423

REACTIONS (1)
  - GASTROINTESTINAL DISORDER [None]
